FAERS Safety Report 4550376-X (Version None)
Quarter: 2004Q4

REPORT INFORMATION
  Report Type: 
  Country: None (occurrence: None)
  Receive Date: 20041227
  Receipt Date: 20040827
  Transmission Date: 20050328
  Serious: No
  Sender: FDA-Public Use
  Company Number: US088885

PATIENT
  Age: 75 Year
  Sex: Male

DRUGS (11)
  1. ARANESP [Suspect]
     Indication: RENAL FAILURE CHRONIC
     Dosage: 40 MCG, SC
     Route: 058
     Dates: start: 20040105, end: 20040201
  2. CLOPIDOGREL BISULFATE [Concomitant]
  3. ALLOPURINOL [Concomitant]
  4. ACETYLSALICYLIC ACID SRT [Concomitant]
  5. ISOSORBIDE MONONITRATE [Concomitant]
  6. HYDRALAZINE HCL [Concomitant]
  7. FUROSEMIDE [Concomitant]
  8. SIMVASTATIN [Concomitant]
  9. NIFEDIPINE [Concomitant]
  10. METOPROLOL SUCCINATE [Concomitant]
  11. EZETIMIBE [Concomitant]

REACTIONS (3)
  - CHEST PAIN [None]
  - FEELING HOT [None]
  - FLUSHING [None]
